FAERS Safety Report 22537423 (Version 1)
Quarter: 2023Q2

REPORT INFORMATION
  Report Type: Spontaneous
  Country: US (occurrence: US)
  Receive Date: 20230608
  Receipt Date: 20230608
  Transmission Date: 20230721
  Serious: No
  Sender: FDA-Public Use
  Company Number: US-TEVA-2023-US-2894534

PATIENT
  Age: 43 Year
  Sex: Female
  Weight: 122.47 kg

DRUGS (2)
  1. COPAXONE [Suspect]
     Active Substance: GLATIRAMER ACETATE
     Indication: Multiple sclerosis
     Dosage: 40 MG/ML, THREE TIMES A WEEK
     Route: 065
     Dates: start: 1999
  2. DEVICE [Suspect]
     Active Substance: DEVICE
     Indication: Product used for unknown indication
     Route: 065

REACTIONS (6)
  - Injection site exfoliation [Unknown]
  - Injection site erythema [Recovering/Resolving]
  - Injection site granuloma [Unknown]
  - Maternal exposure during pregnancy [Unknown]
  - Maternal exposure during breast feeding [Unknown]
  - Live birth [Unknown]

NARRATIVE: CASE EVENT DATE: 20020101
